FAERS Safety Report 5562823-5 (Version None)
Quarter: 2007Q4

REPORT INFORMATION
  Report Type: 
  Country: None (occurrence: None)
  Receive Date: 20071217
  Receipt Date: 20071210
  Transmission Date: 20080405
  Serious: Yes (Other)
  Sender: FDA-Public Use
  Company Number: PHEH2007US15690

PATIENT
  Age: 78 Year
  Sex: Female

DRUGS (1)
  1. EXJADE [Suspect]
     Dosage: 1000MG/DAY
     Route: 048
     Dates: start: 20061018

REACTIONS (1)
  - ULCER HAEMORRHAGE [None]
